FAERS Safety Report 18171992 (Version 5)
Quarter: 2020Q3

REPORT INFORMATION
  Report Type: Spontaneous
  Country: IT (occurrence: IT)
  Receive Date: 20200820
  Receipt Date: 20200922
  Transmission Date: 20201103
  Serious: Yes (Life-Threatening, Hospitalization, Other)
  Sender: FDA-Public Use
  Company Number: IT-AUROBINDO-AUR-APL-2020-039234

PATIENT
  Age: 12 Year
  Sex: Male
  Weight: 49 kg

DRUGS (7)
  1. NYSTATIN. [Concomitant]
     Active Substance: NYSTATIN
     Indication: PRODUCT USED FOR UNKNOWN INDICATION
     Dosage: 500000 INTERNATIONAL UNIT, 3 TIMES A DAY (1500000, ONCE A DAY)
     Route: 048
  2. METHOTREXATE. [Concomitant]
     Active Substance: METHOTREXATE
     Indication: PRODUCT USED FOR UNKNOWN INDICATION
     Dosage: 20 MILLIGRAM/SQ. METER, EVERY WEEK
     Route: 048
  3. 6?MERCAPTOPURINE MONOHYDRATE [Concomitant]
     Active Substance: MERCAPTOPURINE
     Indication: PRODUCT USED FOR UNKNOWN INDICATION
     Dosage: 75 MILLIGRAM/SQ. METER, ONCE A DAY
     Route: 048
  4. IMATINIB. [Suspect]
     Active Substance: IMATINIB MESYLATE
     Indication: PHILADELPHIA CHROMOSOME POSITIVE
     Dosage: UNK
     Route: 065
  5. COTRIMOXAZOLE [Concomitant]
     Active Substance: SULFAMETHOXAZOLE\TRIMETHOPRIM
     Indication: PRODUCT USED FOR UNKNOWN INDICATION
     Dosage: 320 MILLIGRAM, ONCE A DAY (TWO TIMES A WEEK )
     Route: 048
  6. VINCRISTINE [Concomitant]
     Active Substance: VINCRISTINE
     Indication: PRODUCT USED FOR UNKNOWN INDICATION
     Dosage: 1.5 MILLIGRAM/SQ. METER (EVERY 29 DAYS)
     Route: 042
  7. IMATINIB. [Suspect]
     Active Substance: IMATINIB MESYLATE
     Indication: ACUTE LYMPHOCYTIC LEUKAEMIA
     Dosage: 340 MILLIGRAM/SQ. METER, ONCE A DAY
     Route: 048
     Dates: start: 20180830, end: 20191013

REACTIONS (11)
  - Thrombocytopenia [Recovered/Resolved]
  - Cholangitis [Recovered/Resolved]
  - Fibrin D dimer decreased [Recovered/Resolved]
  - Blood fibrinogen decreased [Recovered/Resolved]
  - Fibrin D dimer increased [Recovered/Resolved]
  - Musculoskeletal pain [Recovered/Resolved]
  - Spontaneous haemorrhage [Recovered/Resolved]
  - Puncture site haemorrhage [Recovered/Resolved]
  - Thrombotic microangiopathy [Recovered/Resolved]
  - Petechiae [Recovered/Resolved]
  - Anaemia [Recovered/Resolved]
